FAERS Safety Report 9828484 (Version 4)
Quarter: 2015Q2

REPORT INFORMATION
  Report Type: Report from Study
  Country: US (occurrence: US)
  Receive Date: 20140117
  Receipt Date: 20150626
  Transmission Date: 20150821
  Serious: Yes (Hospitalization)
  Sender: FDA-Public Use
  Company Number: US-UCBSA-108696

PATIENT
  Age: 56 Year
  Sex: Female
  Weight: 100.3 kg

DRUGS (12)
  1. METHOTREXATE [Concomitant]
     Active Substance: METHOTREXATE
     Dosage: 12.5 MG, WEEKLY (QW)
     Route: 048
  2. PROAIR HFA INH [Concomitant]
     Dosage: 2 DF, 6X/DAY
     Route: 055
  3. CYMBALTA [Concomitant]
     Active Substance: DULOXETINE HYDROCHLORIDE
     Dosage: 60 MG, ONCE DAILY (QD)
     Route: 048
  4. ZESTORETIC [Concomitant]
     Active Substance: HYDROCHLOROTHIAZIDE\LISINOPRIL
     Dosage: HCTZ 25 MG/LISINOPRIL 20 MG
     Route: 048
  5. LOPRESSOR [Concomitant]
     Active Substance: METOPROLOL TARTRATE
     Dosage: 25 MG, ONCE DAILY (QD)
     Route: 048
  6. ADVAIR HFA [Concomitant]
     Active Substance: FLUTICASONE PROPIONATE\SALMETEROL XINAFOATE
     Dosage: 2 DF, 2X/DAY (BID)
     Route: 055
  7. CERTOLIZUMAB PEGOL RA [Suspect]
     Active Substance: CERTOLIZUMAB PEGOL
     Indication: RHEUMATOID ARTHRITIS
     Dosage: 200 MG, EV 2 WEEKS(QOW)
     Route: 058
     Dates: start: 201206, end: 20131227
  8. *ADALIMUMAB [Suspect]
     Active Substance: ADALIMUMAB
     Indication: RHEUMATOID ARTHRITIS
     Dosage: 40 MG, EV 2 WEEKS(QOW)
     Route: 058
     Dates: start: 20120406
  9. ALLEGRA [Concomitant]
     Active Substance: FEXOFENADINE HYDROCHLORIDE
     Dosage: 180 MG, ONCE DAILY (QD)
     Route: 048
  10. FLONASE [Concomitant]
     Active Substance: FLUTICASONE PROPIONATE
     Dosage: 1 DF, 2X/DAY (BID)
     Route: 045
  11. DELTASONE [Concomitant]
     Active Substance: PREDNISONE
     Dosage: 2.5 MG, ONCE DAILY (QD)
     Route: 048
  12. SINGULAIR [Concomitant]
     Active Substance: MONTELUKAST SODIUM
     Dosage: 2.5 MG, ONCE DAILY (QD)
     Route: 048

REACTIONS (1)
  - Pneumonia [Recovered/Resolved]

NARRATIVE: CASE EVENT DATE: 20131220
